FAERS Safety Report 23864071 (Version 1)
Quarter: 2024Q2

REPORT INFORMATION
  Report Type: Spontaneous
  Country: US (occurrence: None)
  Receive Date: 20240516
  Receipt Date: 20240516
  Transmission Date: 20240716
  Serious: No
  Sender: FDA-Public Use
  Company Number: None

PATIENT
  Age: 72 Year
  Sex: Male
  Weight: 80.1 kg

DRUGS (8)
  1. ABREVA [Suspect]
     Active Substance: DOCOSANOL
     Indication: Oral herpes
     Dosage: OTHER STRENGTH : CREAM APPLICATION;?OTHER QUANTITY : 5 CREAM;?FREQUENCY : 4 TIMES A DAY;?
     Route: 061
     Dates: start: 20240502, end: 20240507
  2. ABREVA [Suspect]
     Active Substance: DOCOSANOL
     Indication: Prophylaxis
  3. ASTOVARTION [Concomitant]
  4. CANDESARTAN [Concomitant]
     Active Substance: CANDESARTAN
  5. VITAMIN C [Concomitant]
     Active Substance: ASCORBIC ACID
  6. VITAMIN D [Concomitant]
     Active Substance: VITAMIN D NOS
  7. VITAMINS [Concomitant]
     Active Substance: VITAMINS
  8. NM-6603 [Concomitant]
     Active Substance: NM-6603

REACTIONS (3)
  - Lip erythema [None]
  - Lip swelling [None]
  - Circumoral swelling [None]

NARRATIVE: CASE EVENT DATE: 20240508
